FAERS Safety Report 7207595-3 (Version None)
Quarter: 2011Q1

REPORT INFORMATION
  Report Type: 
  Country: None (occurrence: None)
  Receive Date: 20110103
  Receipt Date: 20100420
  Transmission Date: 20110831
  Serious: Yes (Hospitalization)
  Sender: FDA-Public Use
  Company Number: CHPA2010GB07074

PATIENT
  Age: 19 Year
  Sex: Female

DRUGS (8)
  1. ZOPICLONE [Suspect]
     Indication: INTENTIONAL OVERDOSE
     Dosage: 71.25 MG, UNK
     Route: 048
     Dates: start: 20100413, end: 20100413
  2. AMOXICILLIN [Suspect]
     Indication: INTENTIONAL OVERDOSE
     Dosage: UNK, UNK
     Route: 048
     Dates: start: 20100413, end: 20100413
  3. NYTOL [Suspect]
     Indication: INTENTIONAL OVERDOSE
     Dosage: UNK, UNK
     Route: 048
     Dates: start: 20100413, end: 20100413
  4. PHENYLEPHRINE [Suspect]
     Indication: INTENTIONAL OVERDOSE
     Dosage: UNK, UNK
     Route: 048
     Dates: start: 20100413, end: 20100413
  5. ALCOHOL [Suspect]
     Dosage: UNK, UNK
  6. PARACETAMOL [Suspect]
     Indication: INTENTIONAL OVERDOSE
     Dosage: UNK, UNK
     Route: 048
     Dates: start: 20100413, end: 20100413
  7. THEOPHYLLINE [Suspect]
     Indication: INTENTIONAL OVERDOSE
     Dosage: UNK, UNK
     Route: 048
     Dates: start: 20100413, end: 20100413
  8. DO-DO [Suspect]
     Indication: INTENTIONAL OVERDOSE
     Dosage: UNK, UNK
     Route: 048
     Dates: start: 20100413, end: 20100413

REACTIONS (5)
  - MYALGIA [None]
  - BLOOD POTASSIUM DECREASED [None]
  - RHABDOMYOLYSIS [None]
  - BLOOD CREATINE PHOSPHOKINASE INCREASED [None]
  - INTENTIONAL OVERDOSE [None]
